FAERS Safety Report 24771093 (Version 1)
Quarter: 2024Q4

REPORT INFORMATION
  Report Type: Spontaneous
  Country: US (occurrence: None)
  Receive Date: 20241224
  Receipt Date: 20241224
  Transmission Date: 20250115
  Serious: Yes (Disabling)
  Sender: Public
  Company Number: None

PATIENT
  Age: 57 Year
  Sex: Female
  Weight: 121.5 kg

DRUGS (4)
  1. SUBOXONE [Suspect]
     Active Substance: BUPRENORPHINE HYDROCHLORIDE\NALOXONE HYDROCHLORIDE
     Indication: Pain management
     Dosage: FREQUENCY : TWICE A DAY;?
     Route: 060
     Dates: start: 20171115
  2. Bp meds [Concomitant]
  3. VITAMIN B [Concomitant]
     Active Substance: VITAMIN B
  4. VITAMIN D NOS [Concomitant]
     Active Substance: CHOLECALCIFEROL\ERGOCALCIFEROL

REACTIONS (3)
  - Infection [None]
  - Tooth loss [None]
  - Dental caries [None]

NARRATIVE: CASE EVENT DATE: 20181115
